FAERS Safety Report 7557766-1 (Version None)
Quarter: 2011Q2

REPORT INFORMATION
  Report Type: 
  Country: None (occurrence: None)
  Receive Date: 20110620
  Receipt Date: 20110607
  Transmission Date: 20111010
  Serious: Yes (Hospitalization)
  Sender: FDA-Public Use
  Company Number: JP-MERCK-1106USA01193

PATIENT
  Age: 64 Year
  Sex: Male
  Weight: 62 kg

DRUGS (5)
  1. LYRICA [Suspect]
     Indication: INTERVERTEBRAL DISC DISORDER
     Route: 048
     Dates: start: 20110419, end: 20110520
  2. LOXONIN [Concomitant]
     Indication: INTERVERTEBRAL DISC DISORDER
     Route: 065
     Dates: start: 20110419
  3. PEPCID RPD [Suspect]
     Route: 048
     Dates: start: 20110419, end: 20110525
  4. CELECOXIB [Suspect]
     Indication: INTERVERTEBRAL DISC DISORDER
     Route: 048
     Dates: start: 20110419, end: 20110525
  5. LOXONIN [Concomitant]
     Route: 065
     Dates: start: 20110516, end: 20110516

REACTIONS (3)
  - ENCEPHALOPATHY [None]
  - DIZZINESS [None]
  - SOMNOLENCE [None]
